FAERS Safety Report 9879133 (Version 1)
Quarter: 2014Q1

REPORT INFORMATION
  Report Type: Spontaneous
  Country: US (occurrence: US)
  Receive Date: 20140206
  Receipt Date: 20140206
  Transmission Date: 20141002
  Serious: No
  Sender: FDA-Public Use
  Company Number: US-ALLERGAN-1313152US

PATIENT
  Age: 50 Year
  Sex: Female

DRUGS (8)
  1. BOTOX [Suspect]
     Indication: HYPERTONIC BLADDER
     Dosage: UNK, SINGLE
     Dates: start: 20130523, end: 20130523
  2. TOVIAZ [Concomitant]
     Indication: HYPERTONIC BLADDER
     Dosage: 8 MG, QD
     Route: 048
  3. DOXAZOSIN MESYLATE [Concomitant]
     Indication: HYPERTONIC BLADDER
     Dosage: 4 MG, QHS
     Route: 048
     Dates: start: 2012
  4. CITALOPRAM [Concomitant]
     Indication: PRODUCT USED FOR UNKNOWN INDICATION
     Dosage: 20 MG, QD
     Route: 048
  5. VITAMIN D                          /00107901/ [Concomitant]
     Indication: SUPPLEMENTATION THERAPY
     Dosage: UNK
  6. VITAMIN C                          /00008001/ [Concomitant]
     Indication: SUPPLEMENTATION THERAPY
     Dosage: UNK
  7. VITAMIN B [Concomitant]
     Indication: SUPPLEMENTATION THERAPY
     Dosage: UNK
  8. IRON [Concomitant]
     Indication: SUPPLEMENTATION THERAPY
     Dosage: UNK UNK, PRN

REACTIONS (8)
  - Incoherent [Unknown]
  - Mental impairment [Unknown]
  - Blood urine present [Recovered/Resolved]
  - Dizziness [Unknown]
  - Bladder pain [Recovered/Resolved]
  - Feeling hot [Unknown]
  - Pain [Unknown]
  - Drug ineffective [Unknown]
